FAERS Safety Report 11726175 (Version 1)
Quarter: 2015Q4

REPORT INFORMATION
  Report Type: Spontaneous
  Country: US (occurrence: US)
  Receive Date: 20151110
  Receipt Date: 20151110
  Transmission Date: 20160304
  Serious: No
  Sender: FDA-Public Use
  Company Number: US-ELI_LILLY_AND_COMPANY-US201110005958

PATIENT
  Sex: Female

DRUGS (3)
  1. INTERFERON [Concomitant]
     Active Substance: INTERFERON
  2. VALIUM [Concomitant]
     Active Substance: DIAZEPAM
  3. FORTEO [Suspect]
     Active Substance: TERIPARATIDE
     Indication: OSTEOPOROSIS
     Dosage: 20 UG, QD

REACTIONS (8)
  - Depressed mood [Unknown]
  - Balance disorder [Unknown]
  - Essential tremor [Unknown]
  - Stress [Unknown]
  - Memory impairment [Unknown]
  - Weight decreased [Not Recovered/Not Resolved]
  - Decreased appetite [Recovered/Resolved]
  - Tremor [Unknown]
